FAERS Safety Report 7995453-6 (Version None)
Quarter: 2011Q4

REPORT INFORMATION
  Report Type: 
  Country: None (occurrence: None)
  Receive Date: 20111220
  Receipt Date: 20111213
  Transmission Date: 20120403
  Serious: Yes (Hospitalization)
  Sender: FDA-Public Use
  Company Number: US-BAYER-2011-042743

PATIENT
  Age: 38 Year
  Sex: Female
  Weight: 63 kg

DRUGS (5)
  1. LIPITOR [Concomitant]
  2. CYMBALTA [Concomitant]
     Indication: DEPRESSION
     Dosage: 125 MG, QD
     Route: 048
  3. YAZ [Suspect]
     Indication: HORMONE LEVEL ABNORMAL
     Dosage: UNK
     Dates: start: 20061004, end: 20061013
  4. TYLOX [Concomitant]
     Indication: PAIN
     Route: 048
  5. MICARDIS [Concomitant]
     Indication: HYPERTENSION
     Dosage: 80 MG, BID
     Route: 048

REACTIONS (6)
  - FEAR [None]
  - ANHEDONIA [None]
  - PSYCHOLOGICAL TRAUMA [None]
  - MYOCARDIAL INFARCTION [None]
  - ANXIETY [None]
  - PAIN [None]
